FAERS Safety Report 12859597 (Version 1)
Quarter: 2016Q4

REPORT INFORMATION
  Report Type: Spontaneous
  Country: FR (occurrence: FR)
  Receive Date: 20161018
  Receipt Date: 20161018
  Transmission Date: 20170207
  Serious: Yes (Other)
  Sender: FDA-Public Use
  Company Number: ALCN2016FR006909

PATIENT
  Age: 9 Year
  Sex: Male
  Weight: 30 kg

DRUGS (1)
  1. CYCLOPENTOLATE HCL [Suspect]
     Active Substance: CYCLOPENTOLATE HYDROCHLORIDE
     Indication: PRODUCT USED FOR UNKNOWN INDICATION
     Dosage: 6 DROPS, CYCLE
     Route: 047
     Dates: start: 20160831, end: 20160831

REACTIONS (5)
  - Somnolence [Recovered/Resolved]
  - Confusional state [Recovered/Resolved]
  - Chest discomfort [Recovered/Resolved]
  - Mydriasis [Recovered/Resolved]
  - Eye irritation [Recovered/Resolved]

NARRATIVE: CASE EVENT DATE: 20160831
